FAERS Safety Report 12937167 (Version 3)
Quarter: 2016Q4

REPORT INFORMATION
  Report Type: Spontaneous
  Country: US (occurrence: US)
  Receive Date: 20161114
  Receipt Date: 20161221
  Transmission Date: 20170207
  Serious: Yes (Other)
  Sender: FDA-Public Use
  Company Number: US-PFIZER INC-2016524122

PATIENT
  Age: 53 Year
  Sex: Female

DRUGS (21)
  1. MAGNESIUM [Concomitant]
     Active Substance: MAGNESIUM
     Dosage: 3 TABLETS OF 250 MG IN THE MORNING AND 2 TABLETS IN THE AFTERNOON
  2. ZANTAC [Concomitant]
     Active Substance: RANITIDINE HYDROCHLORIDE
     Dosage: 150 MG, AT SUPPER AND AS NEEDED
  3. BUPROPION. [Concomitant]
     Active Substance: BUPROPION
     Dosage: 300 MG (2 TABLETS), DAILY
  4. CELEBREX [Concomitant]
     Active Substance: CELECOXIB
     Dosage: 200 MG, 1X/DAY
  5. GABAPENTIN. [Concomitant]
     Active Substance: GABAPENTIN
     Dosage: 600 MG, 3X/DAY
  6. ONDANSETRON HYDROCHLORIDE. [Concomitant]
     Active Substance: ONDANSETRON HYDROCHLORIDE
     Dosage: 4 MG, EVERY 8 HOURS AS NEEDED
  7. DIAZEPAM. [Concomitant]
     Active Substance: DIAZEPAM
     Dosage: 2 MG, 2-3 TIMES A DAYAS NEEDED
  8. DICYCLOMINE [Concomitant]
     Active Substance: DICYCLOMINE HYDROCHLORIDE
     Dosage: 1 DF, 4 TIMES A DAYAS NEEDED
  9. PRAZOSIN [Concomitant]
     Active Substance: PRAZOSIN
     Dosage: 2 MG, 1X/DAY (EVERY AFTERNOON)
  10. LEVOTHYROXINE. [Concomitant]
     Active Substance: LEVOTHYROXINE
     Dosage: 150 UG, 1X/DAY (EVERY MORNING)
  11. FOLIC ACID. [Concomitant]
     Active Substance: FOLIC ACID
     Dosage: 1 MG, 1X/DAY (EVERY MORNING)
  12. VITAFUSION CALCIUM [Concomitant]
     Dosage: 1 DF, 1X/DAY
  13. VITAMIN D3 [Concomitant]
     Active Substance: CHOLECALCIFEROL
     Dosage: 2000 IU (1 TABLET), 1X/DAY (EVERY MORNING)
  14. TRAMADOL. [Concomitant]
     Active Substance: TRAMADOL
     Dosage: 50 MG, 4X/DAY
  15. TYLENOL 650 [Concomitant]
     Dosage: 2 TABLETS OF 650 MG EVERY 8 HOURS AS NEEDED
  16. EXCEDRIN MIGRAINE [Concomitant]
     Active Substance: ACETAMINOPHEN\ASPIRIN\CAFFEINE
     Dosage: 1000 MG (2 TABLETS), EVERY 8 HOURS AS NEEDED
  17. IBUPROFEN. [Concomitant]
     Active Substance: IBUPROFEN
     Dosage: 800 MG (4 TABLETS), EVERY 8 HOURS AS NEEDED
  18. PRILOSEC [Concomitant]
     Active Substance: OMEPRAZOLE MAGNESIUM
     Dosage: 20 MG, 2X/DAY
  19. LYRICA [Suspect]
     Active Substance: PREGABALIN
     Dosage: 225 MG, 2X/DAY
     Route: 048
  20. VIACTIV CALCIUM + D [Concomitant]
     Dosage: 1 DF, 1X/DAY (IN THE MORNING)
  21. CLONAZEPAM. [Concomitant]
     Active Substance: CLONAZEPAM
     Dosage: 4 MG (2 TABLETS), 1X/DAY (EVERY AFTERNOON)

REACTIONS (13)
  - Irritable bowel syndrome [Unknown]
  - Migraine [Unknown]
  - Gastrooesophageal reflux disease [Unknown]
  - Depression [Unknown]
  - Fibromyalgia [Unknown]
  - Dissociative identity disorder [Unknown]
  - Headache [Unknown]
  - Thyroid disorder [Unknown]
  - Arthritis [Unknown]
  - Barrett^s oesophagus [Unknown]
  - Post-traumatic stress disorder [Unknown]
  - Impaired gastric emptying [Unknown]
  - Insomnia [Unknown]
